FAERS Safety Report 8412770-6 (Version None)
Quarter: 2012Q2

REPORT INFORMATION
  Report Type: 
  Country: None (occurrence: None)
  Receive Date: 20120605
  Receipt Date: 20120524
  Transmission Date: 20120825
  Serious: No
  Sender: FDA-Public Use
  Company Number: US-AMGEN-USASP2012032767

PATIENT
  Sex: Female

DRUGS (4)
  1. FOLIC ACID [Concomitant]
  2. DICLOFENAC SODIUM [Concomitant]
  3. METHOTREXATE [Concomitant]
  4. ENBREL [Suspect]
     Indication: PSORIATIC ARTHROPATHY
     Dosage: 50 MG, QWK
     Dates: start: 20111201

REACTIONS (1)
  - PAIN IN EXTREMITY [None]
